FAERS Safety Report 19263456 (Version 8)
Quarter: 2022Q1

REPORT INFORMATION
  Report Type: Spontaneous
  Country: US (occurrence: US)
  Receive Date: 20210517
  Receipt Date: 20220126
  Transmission Date: 20220423
  Serious: Yes (Other)
  Sender: FDA-Public Use
  Company Number: US-GLAXOSMITHKLINE-US2021103026

PATIENT
  Age: 66 Year
  Sex: Female

DRUGS (4)
  1. ZEJULA [Suspect]
     Active Substance: NIRAPARIB
     Indication: Ovarian cancer
     Dosage: 200 MG, QD
     Dates: start: 20210506
  2. ZEJULA [Suspect]
     Active Substance: NIRAPARIB
     Dosage: 200 MG, QD (100 MG BID)
     Route: 048
     Dates: start: 202105
  3. ZEJULA [Suspect]
     Active Substance: NIRAPARIB
     Dosage: 200 MG, QD
  4. ZEJULA [Suspect]
     Active Substance: NIRAPARIB
     Dosage: 200MG, QD, PM
     Route: 048
     Dates: end: 20211026

REACTIONS (20)
  - Malignant neoplasm progression [Unknown]
  - Nausea [Recovering/Resolving]
  - Decreased appetite [Not Recovered/Not Resolved]
  - Fatigue [Recovering/Resolving]
  - Blood pressure systolic increased [Recovered/Resolved with Sequelae]
  - Headache [Recovered/Resolved with Sequelae]
  - Hypertension [Unknown]
  - Oropharyngeal pain [Not Recovered/Not Resolved]
  - Oral pain [Unknown]
  - Cough [Unknown]
  - Upper-airway cough syndrome [Unknown]
  - Asthenia [Not Recovered/Not Resolved]
  - Positron emission tomogram abnormal [Unknown]
  - Constipation [Unknown]
  - Abdominal discomfort [Unknown]
  - Foot fracture [Unknown]
  - Dizziness [Recovered/Resolved]
  - Abdominal pain upper [Unknown]
  - Weight decreased [Unknown]
  - Ulcer [Unknown]

NARRATIVE: CASE EVENT DATE: 20210501
